FAERS Safety Report 7898209-8 (Version None)
Quarter: 2011Q4

REPORT INFORMATION
  Report Type: 
  Country: None (occurrence: None)
  Receive Date: 20111107
  Receipt Date: 20111024
  Transmission Date: 20120403
  Serious: Yes (Other)
  Sender: FDA-Public Use
  Company Number: US-GLAXOSMITHKLINE-A0915692A

PATIENT
  Age: 55 Year
  Sex: Male

DRUGS (2)
  1. AVANDARYL [Suspect]
     Indication: DIABETES MELLITUS
     Route: 048
     Dates: start: 20060901, end: 20100701
  2. AVANDIA [Suspect]
     Indication: DIABETES MELLITUS

REACTIONS (6)
  - CORONARY ARTERY DISEASE [None]
  - RENAL FAILURE ACUTE [None]
  - HYPERTENSION [None]
  - RENAL FAILURE CHRONIC [None]
  - HYPERLIPIDAEMIA [None]
  - PULMONARY HYPERTENSION [None]
